FAERS Safety Report 9451665 (Version 3)
Quarter: 2013Q3

REPORT INFORMATION
  Report Type: Spontaneous
  Country: US (occurrence: US)
  Receive Date: 20130812
  Receipt Date: 20130903
  Transmission Date: 20140515
  Serious: No
  Sender: FDA-Public Use
  Company Number: US-009507513-1308USA003453

PATIENT
  Age: 59 Year
  Sex: Female
  Weight: 98.87 kg

DRUGS (11)
  1. SAPHRIS [Suspect]
     Indication: ANTIDEPRESSANT THERAPY
     Dosage: 10 MG DAILY
     Route: 060
     Dates: start: 20130611, end: 20130731
  2. SAPHRIS [Suspect]
     Dosage: 5 MG DAILY
     Route: 060
     Dates: start: 20130521, end: 20130611
  3. CHLORPROMAZINE [Suspect]
  4. ATIVAN [Concomitant]
  5. SYNTHROID [Concomitant]
  6. CRESTOR [Concomitant]
  7. CELEXA [Concomitant]
     Indication: ANTIDEPRESSANT THERAPY
     Dosage: 40 MG DAILY
     Dates: end: 20130611
  8. CELEXA [Concomitant]
     Dosage: 20 MG DAILY
     Dates: start: 20130611, end: 20130703
  9. ANAFRANIL [Concomitant]
     Dosage: 25 MG DAILY
     Route: 048
     Dates: end: 20130703
  10. ANAFRANIL [Concomitant]
     Dosage: 25 MG BID
     Route: 048
     Dates: start: 20130703, end: 20130731
  11. ANAFRANIL [Concomitant]
     Dosage: 25 MG DAILY
     Route: 048
     Dates: start: 20130731

REACTIONS (4)
  - Tardive dyskinesia [Recovered/Resolved]
  - Underdose [Unknown]
  - Inappropriate schedule of drug administration [Unknown]
  - Expired drug administered [Unknown]
